FAERS Safety Report 5655427-7 (Version None)
Quarter: 2008Q1

REPORT INFORMATION
  Report Type: 
  Country: None (occurrence: None)
  Receive Date: 20080219
  Receipt Date: 20080114
  Transmission Date: 20080703
  Serious: Yes (Other)
  Sender: FDA-Public Use
  Company Number: WAES 0801USA02862

PATIENT
  Age: 73 Year

DRUGS (2)
  1. JANUVIA [Suspect]
     Dosage: 100 MG/DAILY/PO
     Route: 048
     Dates: start: 20070901
  2. POTASSIUM CHLORIDE [Concomitant]

REACTIONS (1)
  - MEDICATION RESIDUE [None]
